FAERS Safety Report 19943786 (Version 2)
Quarter: 2021Q4

REPORT INFORMATION
  Report Type: Spontaneous
  Country: CN (occurrence: CN)
  Receive Date: 20211012
  Receipt Date: 20211027
  Transmission Date: 20220303
  Serious: Yes (Hospitalization, Other)
  Sender: FDA-Public Use
  Company Number: CN-ACCORD-241006

PATIENT
  Age: 95 Year
  Sex: Male

DRUGS (12)
  1. ITRACONAZOLE [Interacting]
     Active Substance: ITRACONAZOLE
     Indication: Lung disorder
     Dosage: BID
  2. RIVAROXABAN [Interacting]
     Active Substance: RIVAROXABAN
     Indication: Cardiovascular disorder
     Dosage: BID?2.5 MG TWICE DAILY (VERY LOW DOSE)
  3. BISOPROLOL FUMARATE [Concomitant]
     Active Substance: BISOPROLOL FUMARATE
     Indication: Cardiovascular disorder
     Dosage: QD
  4. ISOSORBIDE MONONITRATE [Concomitant]
     Active Substance: ISOSORBIDE MONONITRATE
     Indication: Cardiovascular disorder
     Dosage: QD
  5. SPIRONOLACTONE [Concomitant]
     Active Substance: SPIRONOLACTONE
     Indication: Cardiovascular disorder
     Dosage: QD
  6. TIOTROPIUM BROMIDE [Concomitant]
     Active Substance: TIOTROPIUM BROMIDE
     Indication: Lung disorder
     Dosage: ONCE, AT NIGHT (QN) 18 UG QN
  7. SALMETEROL [Concomitant]
     Active Substance: SALMETEROL
     Indication: Lung disorder
     Dosage: 50 UG/250 UG Q12H (EVERY 12 HOURS)
  8. AMBROXOL HYDROCHLORIDE [Concomitant]
     Active Substance: AMBROXOL HYDROCHLORIDE
     Indication: Lung disorder
     Dosage: TID
  9. FERROUS SUCCINATE [Concomitant]
     Active Substance: FERROUS SUCCINATE
     Dosage: TID
  10. VITAMIN C [Concomitant]
     Active Substance: ASCORBIC ACID
     Dosage: BID
  11. ESOMEPRAZOLE. [Concomitant]
     Active Substance: ESOMEPRAZOLE MAGNESIUM
     Dosage: BID
  12. CASPOFUNGIN [Concomitant]
     Active Substance: CASPOFUNGIN
     Indication: Pneumonia fungal
     Dosage: FOR 2 WEEKS

REACTIONS (2)
  - Haemothorax [Recovered/Resolved]
  - Drug interaction [Unknown]
